FAERS Safety Report 12098328 (Version 2)
Quarter: 2016Q2

REPORT INFORMATION
  Report Type: Spontaneous
  Country: US (occurrence: US)
  Receive Date: 20160222
  Receipt Date: 20160512
  Transmission Date: 20160815
  Serious: No
  Sender: FDA-Public Use
  Company Number: US-009507513-1602USA007707

PATIENT
  Age: 82 Year
  Sex: Male

DRUGS (3)
  1. AMBIEN [Concomitant]
     Active Substance: ZOLPIDEM TARTRATE
  2. PEAK LIFE SOMNAPURE [Concomitant]
     Dosage: EVERY OTHER NIGHT
  3. BELSOMRA [Suspect]
     Active Substance: SUVOREXANT
     Indication: INSOMNIA
     Dosage: EVERY OTHER NIGHT
     Route: 048
     Dates: start: 201508

REACTIONS (4)
  - Abnormal dreams [Unknown]
  - Nightmare [Not Recovered/Not Resolved]
  - Nephrolithiasis [Unknown]
  - Sleep disorder [Recovered/Resolved]

NARRATIVE: CASE EVENT DATE: 201508
